FAERS Safety Report 15294874 (Version 2)
Quarter: 2019Q1

REPORT INFORMATION
  Report Type: Spontaneous
  Country: FR (occurrence: FR)
  Receive Date: 20180820
  Receipt Date: 20190305
  Transmission Date: 20190417
  Serious: Yes (Death, Other)
  Sender: FDA-Public Use
  Company Number: FR-LUPIN PHARMACEUTICALS INC.-2018-05832

PATIENT
  Age: 37 Year
  Sex: Female

DRUGS (8)
  1. SUBUTEX [Suspect]
     Active Substance: BUPRENORPHINE HYDROCHLORIDE
     Indication: PRODUCT SUBSTITUTION
     Dosage: 8 MG, QD (HIGH-DOSE)
     Route: 065
  2. PHENERGAN [Suspect]
     Active Substance: PROMETHAZINE HYDROCHLORIDE
     Indication: PRODUCT USED FOR UNKNOWN INDICATION
     Dosage: 2 DF, QD (PRESCRIPTION FOR 1 MONTH)
     Route: 065
  3. DEPAKENE [Concomitant]
     Active Substance: VALPROIC ACID
     Indication: SUICIDE ATTEMPT
     Dosage: 3 DF, QD
     Route: 065
  4. BROMAZEPAM [Concomitant]
     Active Substance: BROMAZEPAM
     Indication: PRODUCT USED FOR UNKNOWN INDICATION
     Dosage: 3 DF, QD
     Route: 065
  5. PAROXETINE. [Suspect]
     Active Substance: PAROXETINE
     Indication: ANTIDEPRESSANT THERAPY
     Dosage: UNK
     Route: 065
  6. SUBUTEX [Suspect]
     Active Substance: BUPRENORPHINE HYDROCHLORIDE
     Indication: SUICIDE ATTEMPT
     Dosage: 6 MG, QD
     Route: 065
  7. MEPRONIZINE [Concomitant]
     Active Substance: ACEPROMETAZINE MALEATE\MEPROBAMATE
     Indication: SUICIDE ATTEMPT
     Dosage: 2 DF, QD
     Route: 065
  8. HYDROXYZINE [Suspect]
     Active Substance: HYDROXYZINE HYDROCHLORIDE
     Indication: SUICIDE ATTEMPT
     Dosage: 3 DF, QD
     Route: 065

REACTIONS (6)
  - Toxicity to various agents [Fatal]
  - Asphyxia [Fatal]
  - Overdose [Fatal]
  - Condition aggravated [Fatal]
  - Altered state of consciousness [Fatal]
  - Completed suicide [Fatal]
